FAERS Safety Report 4537134-7 (Version None)
Quarter: 2005Q1

REPORT INFORMATION
  Report Type: 
  Country: None (occurrence: None)
  Receive Date: 20041223
  Receipt Date: 20041214
  Transmission Date: 20050727
  Serious: Yes (Hospitalization)
  Sender: FDA-Public Use
  Company Number: PHRM2004FR03655

PATIENT
  Age: 83 Year
  Sex: Female

DRUGS (10)
  1. FEMARA [Suspect]
     Indication: BREAST CANCER FEMALE
     Route: 048
  2. FOSAMAX [Suspect]
     Dosage: 1 DF, QW
     Route: 048
  3. PARIET [Suspect]
     Dosage: 1 DF, QD
     Route: 048
  4. CORTANCYL [Suspect]
     Dosage: 5 MG, QD
     Route: 048
  5. NOVATREX [Suspect]
     Route: 048
  6. HYDROSOL POLYVITAMINE [Concomitant]
  7. BRONCHODUAL [Concomitant]
     Dosage: 4 DF PER DAY
  8. NORMISON [Concomitant]
     Dosage: 1 DF, QD
     Route: 048
  9. DURAGESIC [Concomitant]
     Dosage: 1 DF, Q72H
     Route: 062
  10. ATARAX [Concomitant]
     Dosage: 1 DF, QD

REACTIONS (10)
  - ACUTE RESPIRATORY FAILURE [None]
  - C-REACTIVE PROTEIN INCREASED [None]
  - CHEST X-RAY ABNORMAL [None]
  - CYTOLYTIC HEPATITIS [None]
  - HEPATIC ENZYME INCREASED [None]
  - LUNG DISORDER [None]
  - MALNUTRITION [None]
  - PO2 DECREASED [None]
  - PYREXIA [None]
  - THROMBOCYTOPENIA [None]
